FAERS Safety Report 9448653 (Version 1)
Quarter: 2013Q3

REPORT INFORMATION
  Report Type: Spontaneous
  Country: US (occurrence: US)
  Receive Date: 20130808
  Receipt Date: 20130808
  Transmission Date: 20140515
  Serious: No
  Sender: FDA-Public Use
  Company Number: US-BAYER-2013-096233

PATIENT
  Age: 73 Year
  Sex: Female
  Weight: 63.49 kg

DRUGS (3)
  1. ALEVE CAPLET [Suspect]
     Indication: BACK PAIN
     Dosage: 2 DF, QD
     Route: 048
     Dates: start: 2003
  2. ONE A DAY WOMEN^S [Concomitant]
  3. BAYER ASPIRIN REGIMEN ADULT LOW STRENGTH [Concomitant]

REACTIONS (1)
  - Incorrect drug administration duration [None]
